FAERS Safety Report 6274325-1 (Version None)
Quarter: 2009Q3

REPORT INFORMATION
  Report Type: 
  Country: None (occurrence: None)
  Receive Date: 20090720
  Receipt Date: 20090714
  Transmission Date: 20100115
  Serious: Yes (Other)
  Sender: FDA-Public Use
  Company Number: FR-ROXANE LABORATORIES, INC.-2009-RO-00702RO

PATIENT
  Sex: Female

DRUGS (2)
  1. FLECAINIDE ACETATE [Suspect]
     Indication: TACHYCARDIA FOETAL
  2. CIPRALAN [Concomitant]
     Indication: ATRIAL TACHYCARDIA

REACTIONS (1)
  - DRUG INTOLERANCE [None]
